FAERS Safety Report 25184535 (Version 2)
Quarter: 2025Q2

REPORT INFORMATION
  Report Type: Report from Study
  Country: US (occurrence: US)
  Receive Date: 20250410
  Receipt Date: 20250422
  Transmission Date: 20250716
  Serious: Yes (Hospitalization)
  Sender: SANOFI AVENTIS
  Company Number: US-SA-2024SA351145

PATIENT
  Age: 10 Year
  Sex: Male

DRUGS (4)
  1. EFTRENONACOG ALFA [Suspect]
     Active Substance: EFTRENONACOG ALFA
     Indication: Factor IX deficiency
     Dosage: 2000 IU, QW
     Route: 042
     Dates: start: 202309
  2. EFTRENONACOG ALFA [Suspect]
     Active Substance: EFTRENONACOG ALFA
     Indication: Factor IX deficiency
     Dosage: 2000 IU, QW
     Route: 042
     Dates: start: 202309
  3. EFTRENONACOG ALFA [Suspect]
     Active Substance: EFTRENONACOG ALFA
     Route: 042
     Dates: start: 202309
  4. EFTRENONACOG ALFA [Suspect]
     Active Substance: EFTRENONACOG ALFA
     Route: 042
     Dates: start: 202309

REACTIONS (5)
  - Central venous catheterisation [Unknown]
  - Device related infection [Recovering/Resolving]
  - Administration site wound [Unknown]
  - Catheter site erythema [Unknown]
  - Catheter site swelling [Unknown]

NARRATIVE: CASE EVENT DATE: 20241122
